FAERS Safety Report 6584734-9 (Version None)
Quarter: 2010Q1

REPORT INFORMATION
  Report Type: 
  Country: None (occurrence: None)
  Receive Date: 20100217
  Receipt Date: 20100208
  Transmission Date: 20100710
  Serious: Yes (Hospitalization)
  Sender: FDA-Public Use
  Company Number: PHHY2010BR07446

PATIENT
  Age: 3 Year
  Sex: Male

DRUGS (1)
  1. TRILEPTAL [Suspect]
     Indication: EPILEPSY
     Dosage: 2.5 MG BID
     Route: 048
     Dates: start: 20090901

REACTIONS (3)
  - PALLOR [None]
  - STARING [None]
  - VOMITING [None]
